FAERS Safety Report 7743258-3 (Version None)
Quarter: 2011Q3

REPORT INFORMATION
  Report Type: 
  Country: None (occurrence: None)
  Receive Date: 20110901
  Receipt Date: 20110822
  Transmission Date: 20111222
  Serious: Yes (Hospitalization)
  Sender: FDA-Public Use
  Company Number: B0601810A

PATIENT
  Age: 17 Year
  Sex: Male

DRUGS (1)
  1. PROPAFENONE HYDROCHLORIDE [Suspect]
     Indication: PRODUCT USED FOR UNKNOWN INDICATION
     Dosage: 1350 MG

REACTIONS (6)
  - ASTHENIA [None]
  - GRAND MAL CONVULSION [None]
  - ELECTROCARDIOGRAM QRS COMPLEX PROLONGED [None]
  - OVERDOSE [None]
  - DIZZINESS [None]
  - EXCORIATION [None]
